FAERS Safety Report 5817751-4 (Version None)
Quarter: 2008Q3

REPORT INFORMATION
  Report Type: 
  Country: None (occurrence: None)
  Receive Date: 20080722
  Receipt Date: 20080717
  Transmission Date: 20090109
  Serious: Yes (Death, Other)
  Sender: FDA-Public Use
  Company Number: PHHY2008JP12861

PATIENT
  Age: 71 Year
  Sex: Male

DRUGS (5)
  1. SANDIMMUNE [Suspect]
     Indication: EPSTEIN-BARR VIRUS INFECTION
     Dosage: 150 MG/DAY
     Dates: start: 20070715, end: 20070901
  2. SANDIMMUNE [Suspect]
     Dosage: UNK
     Dates: start: 20070901
  3. PREDNISOLONE [Suspect]
     Indication: EPSTEIN-BARR VIRUS INFECTION
     Dosage: 80 MG
     Dates: start: 20070715
  4. ETOPOSIDE [Concomitant]
     Indication: EPSTEIN-BARR VIRUS INFECTION
     Dosage: UNK
     Dates: start: 20070723
  5. CHEMOTHERAPEUTICS NOS [Concomitant]
     Dosage: UNK
     Dates: start: 20070723

REACTIONS (7)
  - BRONCHOPULMONARY ASPERGILLOSIS [None]
  - CYTOMEGALOVIRUS INFECTION [None]
  - GASTRIC ULCER HAEMORRHAGE [None]
  - HEPATIC FUNCTION ABNORMAL [None]
  - LYMPHADENOPATHY [None]
  - PNEUMONIA [None]
  - PYREXIA [None]
